FAERS Safety Report 11952541 (Version 1)
Quarter: 2016Q1

REPORT INFORMATION
  Report Type: Spontaneous
  Country: CH (occurrence: CH)
  Receive Date: 20160125
  Receipt Date: 20160125
  Transmission Date: 20160526
  Serious: Yes (Other)
  Sender: FDA-Public Use
  Company Number: CH-CORDEN PHARMA LATINA S.P.A.-CH-2016COR000024

PATIENT

DRUGS (5)
  1. IFOSFAMIDE. [Suspect]
     Active Substance: IFOSFAMIDE
     Indication: PERIPHERAL PRIMITIVE NEUROECTODERMAL TUMOUR OF SOFT TISSUE
     Dosage: UNK
  2. VINCRISTINE [Suspect]
     Active Substance: VINCRISTINE
     Indication: PERIPHERAL PRIMITIVE NEUROECTODERMAL TUMOUR OF SOFT TISSUE
     Dosage: UNK
  3. ETOPOSIDE. [Suspect]
     Active Substance: ETOPOSIDE
     Indication: PERIPHERAL PRIMITIVE NEUROECTODERMAL TUMOUR OF SOFT TISSUE
     Dosage: UNK
  4. VINCRISTINE [Suspect]
     Active Substance: VINCRISTINE
     Dosage: UNK
  5. DOXORUBICIN [Suspect]
     Active Substance: DOXORUBICIN
     Indication: PERIPHERAL PRIMITIVE NEUROECTODERMAL TUMOUR OF SOFT TISSUE
     Dosage: UNK

REACTIONS (1)
  - Febrile neutropenia [Unknown]
